FAERS Safety Report 5237880-6 (Version None)
Quarter: 2007Q1

REPORT INFORMATION
  Report Type: 
  Country: None (occurrence: None)
  Receive Date: 20070209
  Receipt Date: 20061101
  Transmission Date: 20070707
  Serious: Yes (Other)
  Sender: FDA-Public Use
  Company Number: 2006SP005549

PATIENT
  Age: 57 Year
  Sex: Male

DRUGS (16)
  1. PEG-INTRON [Suspect]
     Indication: HEPATITIS C
     Dates: start: 20060722
  2. RIBAVIRIN [Suspect]
     Indication: HEPATITIS C
     Dosage: PO
     Route: 048
     Dates: start: 20060722
  3. ANDROGEL [Concomitant]
  4. CELLCEPT [Concomitant]
  5. CLONIDINE HCL [Concomitant]
  6. DAPSONE [Concomitant]
  7. FLAGYL [Concomitant]
  8. LACTULOSE [Concomitant]
  9. LEXAPRO [Concomitant]
  10. MS CONTIN [Concomitant]
  11. VITAMIN CAP [Concomitant]
  12. NEXIUM [Concomitant]
  13. CHILDREN'S ASPIRIN [Concomitant]
  14. PROGRAF [Concomitant]
  15. RESTORIL [Concomitant]
  16. SODIUM BICARBONATE [Concomitant]

REACTIONS (7)
  - AMMONIA INCREASED [None]
  - DEPRESSION [None]
  - FATIGUE [None]
  - HYPOAESTHESIA [None]
  - NO THERAPEUTIC RESPONSE [None]
  - OSTEONECROSIS [None]
  - SKIN TIGHTNESS [None]
